FAERS Safety Report 9651478 (Version 2)
Quarter: 2014Q1

REPORT INFORMATION
  Report Type: Spontaneous
  Country: DE (occurrence: JP)
  Receive Date: 20131029
  Receipt Date: 20140221
  Transmission Date: 20141002
  Serious: Yes (Other)
  Sender: FDA-Public Use
  Company Number: JP-FRI-1000050539

PATIENT
  Age: 82 Year
  Sex: Male

DRUGS (5)
  1. MEMANTINE [Suspect]
     Indication: DEMENTIA
     Dosage: 5 MG
     Route: 048
     Dates: start: 20110807
  2. MEMANTINE [Suspect]
     Dosage: 10 MG
     Route: 048
  3. MEMANTINE [Suspect]
     Dosage: 15 MG
     Route: 048
  4. MEMANTINE [Suspect]
     Indication: DEMENTIA
     Dosage: 20 MG
     Dates: end: 20131018
  5. REMINYL [Concomitant]

REACTIONS (1)
  - Hiccups [Recovered/Resolved]
